FAERS Safety Report 4649224-9 (Version None)
Quarter: 2005Q2

REPORT INFORMATION
  Report Type: 
  Country: None (occurrence: None)
  Receive Date: 20050429
  Receipt Date: 20050418
  Transmission Date: 20051028
  Serious: Yes (Other)
  Sender: FDA-Public Use
  Company Number: US-BRISTOL-MYERS SQUIBB COMPANY-12937801

PATIENT
  Age: 69 Year
  Sex: Male

DRUGS (3)
  1. WARFARIN SODIUM [Suspect]
     Indication: ATRIAL FIBRILLATION
     Dosage: INTERRUPTED 19-MAR-2005 FOR TWO DAYS
     Route: 048
  2. COD LIVER OIL [Interacting]
     Indication: MEDICAL DIET
     Route: 048
     Dates: start: 20040601, end: 20050309
  3. OXYTROL [Interacting]
     Indication: URINARY INCONTINENCE
     Dosage: 1 PATCH, 2/WK
     Route: 062
     Dates: start: 20050307

REACTIONS (5)
  - DRUG INTERACTION [None]
  - DRUG INTERACTION POTENTIATION [None]
  - INTERNATIONAL NORMALISED RATIO DECREASED [None]
  - INTERNATIONAL NORMALISED RATIO INCREASED [None]
  - URINARY INCONTINENCE [None]
